FAERS Safety Report 7107940-3 (Version None)
Quarter: 2010Q4

REPORT INFORMATION
  Report Type: 
  Country: None (occurrence: None)
  Receive Date: 20101117
  Receipt Date: 20101110
  Transmission Date: 20110411
  Serious: Yes (Other)
  Sender: FDA-Public Use
  Company Number: US-AMGEN-USASP2010001942

PATIENT

DRUGS (1)
  1. NPLATE [Suspect]
     Indication: APLASTIC ANAEMIA
     Dosage: 120 A?G, UNK
     Route: 058
     Dates: start: 20090602, end: 20090708

REACTIONS (1)
  - THERAPEUTIC RESPONSE DECREASED [None]
